FAERS Safety Report 5028549-1 (Version None)
Quarter: 2006Q2

REPORT INFORMATION
  Report Type: 
  Country: None (occurrence: None)
  Receive Date: 20060615
  Receipt Date: 20060615
  Transmission Date: 20061013
  Serious: Yes (Hospitalization)
  Sender: FDA-Public Use
  Company Number: None

PATIENT
  Age: 32 Year
  Sex: Male
  Weight: 49.5782 kg

DRUGS (2)
  1. LORAZEPAM [Suspect]
     Indication: AGITATION
     Dosage: 2 MG IM X 1 GIVEN ONCE
     Route: 030
  2. LORAZEPAM [Suspect]
     Indication: PSYCHOTIC DISORDER
     Dosage: 2 MG IM X 1 GIVEN ONCE
     Route: 030

REACTIONS (3)
  - BRADYCARDIA [None]
  - DEPRESSED LEVEL OF CONSCIOUSNESS [None]
  - HYPOTENSION [None]
